FAERS Safety Report 4877316-8 (Version None)
Quarter: 2006Q1

REPORT INFORMATION
  Report Type: 
  Country: None (occurrence: None)
  Receive Date: 20060109
  Receipt Date: 20051227
  Transmission Date: 20060701
  Serious: Yes (Death, Hospitalization)
  Sender: FDA-Public Use
  Company Number: 2005-BP-21854RO

PATIENT
  Age: 84 Year
  Sex: Female

DRUGS (8)
  1. METHOTREXATE [Suspect]
     Dosage: 10 MG PER WEEK, PO
     Route: 048
  2. ASPIRIN [Concomitant]
  3. CELECOXIB (CELECOXIB) [Concomitant]
  4. LANSOPRAZOLE [Concomitant]
  5. DIGOXIN [Concomitant]
  6. CEPHRADINE (CEFRADINE) [Concomitant]
  7. CO-PROXAMOL (DI-GESIC) [Concomitant]
  8. AMOXICILLIN [Concomitant]

REACTIONS (1)
  - PANCYTOPENIA [None]
